FAERS Safety Report 17183812 (Version 1)
Quarter: 2019Q4

REPORT INFORMATION
  Report Type: Spontaneous
  Country: JP (occurrence: JP)
  Receive Date: 20191220
  Receipt Date: 20191220
  Transmission Date: 20200122
  Serious: Yes (Other)
  Sender: FDA-Public Use
  Company Number: JP-BAYER-2019-233299

PATIENT
  Sex: Female

DRUGS (2)
  1. MIRENA [Suspect]
     Active Substance: LEVONORGESTREL
     Dosage: 20 MCG/24HR, CONT
     Route: 015
     Dates: start: 201904
  2. MIRENA [Suspect]
     Active Substance: LEVONORGESTREL

REACTIONS (7)
  - Blood loss anaemia [None]
  - Vaginal haemorrhage [None]
  - Metrorrhagia [None]
  - Metrorrhagia [Recovered/Resolved]
  - Amenorrhoea [None]
  - Dizziness [None]
  - Vaginal haemorrhage [None]

NARRATIVE: CASE EVENT DATE: 2019
